FAERS Safety Report 25146160 (Version 6)
Quarter: 2025Q2

REPORT INFORMATION
  Report Type: Report from Study
  Country: BR (occurrence: BR)
  Receive Date: 20250401
  Receipt Date: 20250516
  Transmission Date: 20250717
  Serious: Yes (Death, Hospitalization, Other)
  Sender: NOVARTIS
  Company Number: BR-002147023-NVSC2025BR052945

PATIENT
  Age: 68 Year
  Sex: Female
  Weight: 59 kg

DRUGS (8)
  1. KISQALI [Suspect]
     Active Substance: RIBOCICLIB SUCCINATE
     Indication: Hepatic cancer
     Dosage: ON 18 MAR, 3 DOSAGE FORM, QD, 3 TABLETS PER NOON (21 CONSECUTIVE DAYS, STOP 7 DAYS)
     Route: 048
  2. PURAN [Concomitant]
     Active Substance: LEVOTHYROXINE SODIUM
     Indication: Thyroid disorder
     Dosage: 1 DOSAGE FORM (25 MCG)
     Route: 065
  3. RIVAROXABAN [Concomitant]
     Active Substance: RIVAROXABAN
     Indication: Anticoagulant therapy
     Dosage: 20 MG, QD (1 TABLET PER DAY)
     Route: 065
  4. ROSUVASTATIN [Concomitant]
     Active Substance: ROSUVASTATIN
     Indication: Hepatic steatosis
     Dosage: 10 MG, QD (1 TABLET PER DAY)
     Route: 065
  5. Venaflon [Concomitant]
     Indication: Anticoagulant therapy
     Dosage: 1 DOSAGE FORM, QD (1 TABLET PER DAY)
     Route: 065
  6. OSCAL [Concomitant]
     Active Substance: CALCIUM CARBONATE
     Indication: Product used for unknown indication
     Dosage: 1 DOSAGE FORM, QD (1 TABLET PER DAY)
     Route: 065
  7. VITAMIN D [Concomitant]
     Active Substance: VITAMIN D NOS
     Indication: Product used for unknown indication
     Dosage: 400 IU, QD (1 TABLET PER DAY)
     Route: 065
  8. OMEPRAZOLE [Concomitant]
     Active Substance: OMEPRAZOLE
     Indication: Abdominal discomfort
     Route: 065

REACTIONS (15)
  - Death [Fatal]
  - Asthenia [Recovering/Resolving]
  - Fatigue [Recovering/Resolving]
  - Intra-abdominal fluid collection [Unknown]
  - Eating disorder [Recovering/Resolving]
  - Diarrhoea haemorrhagic [Recovering/Resolving]
  - Diarrhoea [Recovering/Resolving]
  - Tremor [Recovered/Resolved]
  - Gait disturbance [Unknown]
  - Sluggishness [Recovering/Resolving]
  - Abdominal distension [Unknown]
  - Nausea [Recovering/Resolving]
  - Musculoskeletal stiffness [Recovering/Resolving]
  - Blood bilirubin decreased [Unknown]
  - Off label use [Unknown]

NARRATIVE: CASE EVENT DATE: 20250324
